FAERS Safety Report 11253544 (Version 1)
Quarter: 2015Q3

REPORT INFORMATION
  Report Type: Spontaneous
  Country: US (occurrence: None)
  Receive Date: 20150708
  Receipt Date: 20150708
  Transmission Date: 20151125
  Serious: No
  Sender: FDA-Public Use
  Company Number: None

PATIENT
  Age: 21 Year
  Sex: Female

DRUGS (1)
  1. ENBREL [Suspect]
     Active Substance: ETANERCEPT
     Indication: ANKYLOSING SPONDYLITIS
     Route: 058
     Dates: start: 201412, end: 201501

REACTIONS (4)
  - Seizure [None]
  - Injection site rash [None]
  - Injection site urticaria [None]
  - Injection site reaction [None]

NARRATIVE: CASE EVENT DATE: 201412
